FAERS Safety Report 15177678 (Version 2)
Quarter: 2018Q4

REPORT INFORMATION
  Report Type: Report from Study
  Country: CA (occurrence: CA)
  Receive Date: 20180720
  Receipt Date: 20180803
  Transmission Date: 20190204
  Serious: Yes (Death)
  Sender: FDA-Public Use
  Company Number: CA-TAIHO ONCOLOGY  INC-EU-2018-00918

PATIENT
  Age: 83 Year
  Sex: Female

DRUGS (4)
  1. TYLENOL [Concomitant]
     Active Substance: ACETAMINOPHEN
     Dosage: NI
  2. LONSURF [Suspect]
     Active Substance: TIPIRACIL HYDROCHLORIDE\TRIFLURIDINE
     Indication: COLORECTAL CANCER METASTATIC
     Dosage: CYCLE 1
     Route: 048
     Dates: start: 20180509, end: 20180520
  3. ASA [Concomitant]
     Active Substance: ASPIRIN
     Dosage: NI
  4. RANITIDINE. [Concomitant]
     Active Substance: RANITIDINE
     Dosage: NI

REACTIONS (3)
  - Fatigue [Not Recovered/Not Resolved]
  - Colon cancer [Fatal]
  - Drug intolerance [Not Recovered/Not Resolved]

NARRATIVE: CASE EVENT DATE: 201805
